FAERS Safety Report 8005551-9 (Version None)
Quarter: 2011Q4

REPORT INFORMATION
  Report Type: 
  Country: None (occurrence: None)
  Receive Date: 20111223
  Receipt Date: 20111216
  Transmission Date: 20120403
  Serious: Yes (Other)
  Sender: FDA-Public Use
  Company Number: US-JNJFOC-20111208758

PATIENT
  Sex: Female

DRUGS (2)
  1. INVEGA SUSTENNA [Suspect]
     Indication: HALLUCINATION, TACTILE
     Route: 030
     Dates: start: 20111201
  2. INVEGA [Suspect]
     Indication: HALLUCINATION, TACTILE
     Route: 048
     Dates: start: 20111201

REACTIONS (1)
  - DRUG INEFFECTIVE [None]
